FAERS Safety Report 8365618-2 (Version None)
Quarter: 2012Q2

REPORT INFORMATION
  Report Type: 
  Country: None (occurrence: None)
  Receive Date: 20120516
  Receipt Date: 20120511
  Transmission Date: 20120825
  Serious: Yes (Hospitalization)
  Sender: FDA-Public Use
  Company Number: JP-MERCK-1205USA01946

PATIENT
  Age: 70 Year
  Sex: Male

DRUGS (3)
  1. JANUVIA [Suspect]
     Indication: DIABETES MELLITUS
     Route: 048
  2. GLIMICRON [Suspect]
     Indication: DIABETES MELLITUS
     Route: 048
  3. KINEDAK [Suspect]
     Indication: DIABETIC NEUROPATHY
     Route: 048

REACTIONS (1)
  - INTERSTITIAL LUNG DISEASE [None]
